FAERS Safety Report 7110846-7 (Version None)
Quarter: 2010Q4

REPORT INFORMATION
  Report Type: 
  Country: None (occurrence: None)
  Receive Date: 20101118
  Receipt Date: 20101116
  Transmission Date: 20110411
  Serious: Yes (Hospitalization)
  Sender: FDA-Public Use
  Company Number: IT-EISAI INC.-E2080-00337-SPO-IT

PATIENT
  Sex: Female

DRUGS (2)
  1. INOVELON [Suspect]
     Indication: EPILEPSY
     Route: 048
     Dates: start: 20100913, end: 20100928
  2. LUMINALE [Concomitant]

REACTIONS (3)
  - DIARRHOEA [None]
  - HYPERAEMIA [None]
  - PAIN [None]
